FAERS Safety Report 19056091 (Version 1)
Quarter: 2021Q1

REPORT INFORMATION
  Report Type: Spontaneous
  Country: US (occurrence: US)
  Receive Date: 20210324
  Receipt Date: 20210324
  Transmission Date: 20210420
  Serious: Yes (Death, Other)
  Sender: FDA-Public Use
  Company Number: US-B.I. PHARMACEUTICALS,INC./RIDGEFIELD-2021-BI-092085

PATIENT
  Age: 65 Year
  Sex: Female

DRUGS (1)
  1. SPIRIVA RESPIMAT [Suspect]
     Active Substance: TIOTROPIUM BROMIDE
     Indication: PRODUCT USED FOR UNKNOWN INDICATION
     Dosage: (2.5MCG) 2 SPRAYS ONCE DAILY
     Route: 065
     Dates: start: 20210114

REACTIONS (1)
  - Death [Fatal]

NARRATIVE: CASE EVENT DATE: 2021
